FAERS Safety Report 14314138 (Version 1)
Quarter: 2017Q4

REPORT INFORMATION
  Report Type: Spontaneous
  Country: AU (occurrence: AU)
  Receive Date: 20171221
  Receipt Date: 20171221
  Transmission Date: 20180321
  Serious: Yes (Other)
  Sender: FDA-Public Use
  Company Number: AU-ASTRAZENECA-2017SF28121

PATIENT
  Age: 43 Year
  Sex: Male

DRUGS (2)
  1. INSULIN GLARGINE [Concomitant]
     Active Substance: INSULIN GLARGINE
     Dosage: 100 UNITS
  2. BYDUREON [Suspect]
     Active Substance: EXENATIDE
     Dosage: 2
     Route: 065
     Dates: start: 20171109, end: 20171130

REACTIONS (5)
  - Nausea [Unknown]
  - Vomiting [Unknown]
  - Mental disorder [Unknown]
  - Renal failure [Unknown]
  - Dehydration [Unknown]

NARRATIVE: CASE EVENT DATE: 20171123
